FAERS Safety Report 21534439 (Version 1)
Quarter: 2022Q4

REPORT INFORMATION
  Report Type: Spontaneous
  Country: IT (occurrence: IT)
  Receive Date: 20221101
  Receipt Date: 20221101
  Transmission Date: 20230112
  Serious: Yes (Disabling, Other)
  Sender: FDA-Public Use
  Company Number: IT-ELI_LILLY_AND_COMPANY-IT202210010159

PATIENT
  Age: 72 Year
  Sex: Male

DRUGS (6)
  1. HUMALOG [Suspect]
     Active Substance: INSULIN LISPRO
     Indication: Hyperglycaemia
     Dosage: 5 INTERNATIONAL UNIT, BID (BEFORE LUNCH AND BEFORE DINNER)
     Route: 065
     Dates: start: 201510
  2. HUMALOG [Suspect]
     Active Substance: INSULIN LISPRO
     Dosage: 5 INTERNATIONAL UNIT, BID (BEFORE LUNCH AND BEFORE DINNER)
     Route: 065
  3. HUMALOG [Suspect]
     Active Substance: INSULIN LISPRO
     Dosage: 7 INTERNATIONAL UNIT, BID (BEFORE LUNCH AND BEFORE DINNER)
     Route: 065
  4. TOUJEO [Suspect]
     Active Substance: INSULIN GLARGINE
     Indication: Hyperglycaemia
     Dosage: 20 INTERNATIONAL UNIT, UNKNOWN
     Route: 065
  5. LANREOTIDE ACETATE [Concomitant]
     Active Substance: LANREOTIDE ACETATE
     Indication: Pancreatic neuroendocrine tumour
     Dosage: 90 MG, UNKNOWN
     Route: 058
     Dates: end: 202209
  6. LANREOTIDE ACETATE [Concomitant]
     Active Substance: LANREOTIDE ACETATE
     Dosage: 120 MG, UNKNOWN
     Route: 058
     Dates: start: 202209

REACTIONS (4)
  - Hepatic lesion [Unknown]
  - Deafness [Unknown]
  - Blood glucose increased [Recovering/Resolving]
  - Drug ineffective [Unknown]

NARRATIVE: CASE EVENT DATE: 20220101
